FAERS Safety Report 10043176 (Version 1)
Quarter: 2014Q1

REPORT INFORMATION
  Report Type: Spontaneous
  Country: IT (occurrence: IT)
  Receive Date: 20140328
  Receipt Date: 20140328
  Transmission Date: 20141002
  Serious: Yes (Death, Hospitalization)
  Sender: FDA-Public Use
  Company Number: IT-BRISTOL-MYERS SQUIBB COMPANY-20527792

PATIENT
  Age: 83 Year
  Sex: Male

DRUGS (2)
  1. ELIQUIS [Suspect]
     Dosage: NO OF DOSES-2
     Dates: start: 20140307, end: 20140308
  2. HEPARIN SODIUM [Suspect]

REACTIONS (3)
  - Cerebral haemorrhage [Fatal]
  - Speech disorder [Not Recovered/Not Resolved]
  - Confusional state [Not Recovered/Not Resolved]
